FAERS Safety Report 14336720 (Version 2)
Quarter: 2018Q1

REPORT INFORMATION
  Report Type: Spontaneous
  Country: JP (occurrence: JP)
  Receive Date: 20171229
  Receipt Date: 20180316
  Transmission Date: 20180509
  Serious: Yes (Hospitalization)
  Sender: FDA-Public Use
  Company Number: JP-GLAXOSMITHKLINE-JP2017JPN200188

PATIENT
  Age: 34 Year
  Sex: Female
  Weight: 42 kg

DRUGS (4)
  1. IMIGRAN SC [Suspect]
     Active Substance: SUMATRIPTAN SUCCINATE
     Indication: MIGRAINE
     Dosage: 3 MG, SINGLE
     Route: 042
     Dates: start: 20171223, end: 20171223
  2. REBAMIPIDE [Concomitant]
     Active Substance: REBAMIPIDE
     Indication: INFECTION
     Dosage: UNK
     Dates: start: 20171222, end: 20171223
  3. GRACEVIT TABLETS [Concomitant]
     Indication: INFECTION
     Dosage: 50 MG, 1D
     Dates: start: 20171222, end: 20171223
  4. CALONAL TABLET [Concomitant]
     Indication: HEADACHE
     Dosage: 400 MG, 1D
     Dates: start: 20171222, end: 20171223

REACTIONS (4)
  - Tension headache [Recovering/Resolving]
  - Circumstance or information capable of leading to medication error [Unknown]
  - Incorrect route of drug administration [Unknown]
  - Muscle tightness [Recovering/Resolving]

NARRATIVE: CASE EVENT DATE: 20171223
